FAERS Safety Report 21630344 (Version 2)
Quarter: 2022Q4

REPORT INFORMATION
  Report Type: Spontaneous
  Country: BR (occurrence: BR)
  Receive Date: 20221122
  Receipt Date: 20221205
  Transmission Date: 20230113
  Serious: Yes (Other)
  Sender: FDA-Public Use
  Company Number: BR-BIOGEN-2022BI01170508

PATIENT
  Sex: Female

DRUGS (1)
  1. TYSABRI [Suspect]
     Active Substance: NATALIZUMAB
     Indication: Multiple sclerosis
     Route: 050

REACTIONS (5)
  - Thinking abnormal [Unknown]
  - Depression [Unknown]
  - Motor dysfunction [Unknown]
  - Muscle spasticity [Unknown]
  - Cognitive disorder [Unknown]
